FAERS Safety Report 7318385-5 (Version None)
Quarter: 2011Q1

REPORT INFORMATION
  Report Type: 
  Country: None (occurrence: None)
  Receive Date: 20110218
  Receipt Date: 20110218
  Transmission Date: 20110831
  Serious: Yes (Hospitalization)
  Sender: FDA-Public Use
  Company Number: None

PATIENT
  Age: 64 Year
  Sex: Male
  Weight: 121 kg

DRUGS (2)
  1. FLUOROURACIL [Suspect]
     Indication: NEOPLASM MALIGNANT
     Dosage: 950 MG ONCE IV
     Route: 042
  2. OXALIPLATIN [Suspect]
     Indication: NEOPLASM MALIGNANT
     Dosage: 200 MG ONCE IV
     Route: 042
     Dates: start: 20110201, end: 20110201

REACTIONS (2)
  - DIARRHOEA [None]
  - HYPOTENSION [None]
